FAERS Safety Report 14323911 (Version 3)
Quarter: 2018Q1

REPORT INFORMATION
  Report Type: Report from Study
  Country: FR (occurrence: FR)
  Receive Date: 20171226
  Receipt Date: 20180130
  Transmission Date: 20180509
  Serious: Yes (Hospitalization)
  Sender: FDA-Public Use
  Company Number: FR-ROCHE-2043519

PATIENT
  Age: 69 Year
  Sex: Female

DRUGS (10)
  1. ATEZOLIZUMAB. [Suspect]
     Active Substance: ATEZOLIZUMAB
     Indication: OVARIAN CANCER
     Dosage: DATE OF MOST RECENT DOSE WAS ON 07/DEC/2017
     Route: 042
     Dates: start: 20171010, end: 20171207
  2. BLINDED ASPIRIN [Suspect]
     Active Substance: ASPIRIN
     Indication: OVARIAN CANCER
     Dosage: DATE OF MOST RECENT DOSE OF BLINDED ASPRIN WAS ADMINSTERED ON 13/OCT/2017
     Route: 048
     Dates: start: 20171010, end: 20171010
  3. ALPRAZOLAM. [Concomitant]
     Active Substance: ALPRAZOLAM
     Indication: ANXIETY
     Route: 048
  4. LANSOPRAZOLE. [Concomitant]
     Active Substance: LANSOPRAZOLE
     Indication: GASTROOESOPHAGEAL REFLUX DISEASE
     Route: 048
  5. LEVOTHYROX [Concomitant]
     Active Substance: LEVOTHYROXINE
     Route: 048
  6. LAROXYL [Concomitant]
     Active Substance: AMITRIPTYLINE HYDROCHLORIDE
     Indication: ANXIETY
  7. ORAMORPH [Concomitant]
     Active Substance: MORPHINE SULFATE
     Indication: PAIN
     Route: 048
  8. SODIUM CHLORIDE. [Concomitant]
     Active Substance: SODIUM CHLORIDE
     Indication: RENAL FAILURE
  9. LOVENOX [Concomitant]
     Active Substance: ENOXAPARIN SODIUM
  10. PARACETAMOL [Concomitant]
     Active Substance: ACETAMINOPHEN
     Indication: PAIN
     Route: 048

REACTIONS (1)
  - Interstitial lung disease [Unknown]

NARRATIVE: CASE EVENT DATE: 20171211
